FAERS Safety Report 9729060 (Version 2)
Quarter: 2014Q1

REPORT INFORMATION
  Report Type: Report from Study
  Country: JP (occurrence: JP)
  Receive Date: 20131204
  Receipt Date: 20140321
  Transmission Date: 20141002
  Serious: Yes (Hospitalization, Other)
  Sender: FDA-Public Use
  Company Number: PHHY2013JP140511

PATIENT
  Age: 56 Year
  Sex: Female
  Weight: 85 kg

DRUGS (18)
  1. LEPONEX / CLOZARIL [Suspect]
     Indication: SCHIZOPHRENIA, DISORGANISED TYPE
     Dosage: 12.5 MG, DAILY
     Route: 048
     Dates: start: 20130716, end: 20130716
  2. LEPONEX / CLOZARIL [Suspect]
     Dosage: 25 MG, DAILY
     Route: 048
     Dates: start: 20130717, end: 20130719
  3. LEPONEX / CLOZARIL [Suspect]
     Dosage: 50 MG, DAILY
     Route: 048
     Dates: start: 20130720, end: 20130723
  4. LEPONEX / CLOZARIL [Suspect]
     Dosage: 75 MG, DAILY
     Route: 048
     Dates: start: 20130724, end: 20130730
  5. LEPONEX / CLOZARIL [Suspect]
     Dosage: 12.5 MG, DAILY
     Route: 048
     Dates: start: 20130821, end: 20130821
  6. LEPONEX / CLOZARIL [Suspect]
     Dosage: 25 MG, DAILY
     Route: 048
     Dates: start: 20130822, end: 20130824
  7. LEPONEX / CLOZARIL [Suspect]
     Dosage: 50 MG, DAILY
     Route: 048
     Dates: start: 20130825, end: 20130903
  8. ABILIFY [Concomitant]
     Dosage: 30 MG, UNK
     Route: 048
  9. ABILIFY [Concomitant]
     Dosage: 12 MG, UNK
     Route: 048
  10. ABILIFY [Concomitant]
     Dosage: 24 MG, UNK
     Route: 048
  11. INVEGA (PALIPERIDONE) [Concomitant]
     Dosage: 12 MG, UNK
     Route: 048
  12. INVEGA (PALIPERIDONE) [Concomitant]
     Dosage: 6 MG, UNK
     Route: 048
     Dates: end: 20130723
  13. ROZEREM [Concomitant]
     Indication: SCHIZOPHRENIA, DISORGANISED TYPE
     Dosage: 8 MG, UNK
     Route: 048
  14. SILECE [Concomitant]
     Indication: SCHIZOPHRENIA, DISORGANISED TYPE
     Dosage: 2 MG, UNK
     Route: 048
  15. DEPAKENE-R [Concomitant]
     Indication: SCHIZOPHRENIA, DISORGANISED TYPE
     Dosage: 600 MG, UNK
     Route: 048
  16. DEPAKENE-R [Concomitant]
     Dosage: 200 MG, UNK
     Route: 048
     Dates: end: 20130813
  17. MAGMITT [Concomitant]
     Indication: CONSTIPATION
     Dosage: 990 MG, UNK
     Route: 048
  18. GLACTIV [Concomitant]
     Indication: CONSTIPATION
     Dosage: 50 MG, UNK
     Route: 048

REACTIONS (10)
  - Pyrexia [Not Recovered/Not Resolved]
  - Renal failure [Not Recovered/Not Resolved]
  - Haematocrit decreased [Unknown]
  - Haemoglobin decreased [Unknown]
  - Blood alkaline phosphatase increased [Unknown]
  - Red blood cell count decreased [Unknown]
  - Glycosylated haemoglobin increased [Unknown]
  - White blood cell count increased [Recovered/Resolved]
  - Gamma-glutamyltransferase increased [Unknown]
  - Blood glucose increased [Unknown]
